FAERS Safety Report 12936057 (Version 1)
Quarter: 2016Q4

REPORT INFORMATION
  Report Type: Spontaneous
  Country: CN (occurrence: CN)
  Receive Date: 20161114
  Receipt Date: 20161114
  Transmission Date: 20170207
  Serious: Yes (Other)
  Sender: FDA-Public Use
  Company Number: CN-BAYER-2016-216566

PATIENT
  Age: 96 Year
  Sex: Male
  Weight: 55 kg

DRUGS (1)
  1. CLARITYNE [Suspect]
     Active Substance: LORATADINE
     Indication: ALLERGIC COUGH
     Dosage: 10 MG, QD
     Route: 048
     Dates: start: 20160814, end: 20160914

REACTIONS (1)
  - Purpura [Recovered/Resolved]

NARRATIVE: CASE EVENT DATE: 20160910
